FAERS Safety Report 14219657 (Version 10)
Quarter: 2019Q1

REPORT INFORMATION
  Report Type: Spontaneous
  Country: US (occurrence: US)
  Receive Date: 20171123
  Receipt Date: 20190301
  Transmission Date: 20190417
  Serious: No
  Sender: FDA-Public Use
  Company Number: US-PFIZER INC-2017505171

PATIENT
  Age: 62 Year
  Sex: Female
  Weight: 90.72 kg

DRUGS (3)
  1. CELEBREX [Suspect]
     Active Substance: CELECOXIB
     Indication: ARTHRITIS
     Dosage: 200 MG, AS NEEDED [DURING 24HRS PERIOD]
     Dates: start: 2005, end: 201811
  2. NICOTROL [Suspect]
     Active Substance: NICOTINE
     Indication: SMOKING CESSATION THERAPY
     Dosage: UNK UNK, AS NEEDED [24HRS A DAY]
  3. CLEOCIN [Suspect]
     Active Substance: CLINDAMYCIN PHOSPHATE
     Dosage: UNK UNK, AS NEEDED [FLARE-UPS]
     Route: 067

REACTIONS (5)
  - Feeling abnormal [Not Recovered/Not Resolved]
  - Emotional disorder [Not Recovered/Not Resolved]
  - Sleep disorder [Unknown]
  - Gait disturbance [Unknown]
  - Pain [Not Recovered/Not Resolved]
